FAERS Safety Report 5725700-2 (Version None)
Quarter: 2008Q2

REPORT INFORMATION
  Report Type: 
  Country: None (occurrence: None)
  Receive Date: 20080429
  Receipt Date: 20080417
  Transmission Date: 20081010
  Serious: Yes (Hospitalization)
  Sender: FDA-Public Use
  Company Number: 000439

PATIENT
  Age: 74 Year
  Sex: Male
  Weight: 69.2 kg

DRUGS (6)
  1. PLETAAL (CILOSTAZOL) (CODE NOT BROKEN) TABLET [Suspect]
     Indication: CEREBRAL INFARCTION
     Dosage: 100 MG, BID ORAL
     Route: 048
     Dates: start: 20060630, end: 20080403
  2. MARZULENE-S (SODIUM AZULENE SULFONATE/L-GLUTAMINE) GRANULE [Concomitant]
  3. JUVELA (TOCOPHEROL ACETATE) GRANULE [Concomitant]
  4. OLMETEC (OLMESARTAN MEDOXOMIL) TABLET [Concomitant]
  5. CALBLOCK (AZELNIDIPINE) TABLET [Concomitant]
  6. MS ONSHIPPU (CATAPLASMATA) TAPE [Concomitant]

REACTIONS (3)
  - CEREBRAL INFARCTION [None]
  - HAEMORRHOIDAL HAEMORRHAGE [None]
  - LARGE INTESTINE CARCINOMA [None]
